FAERS Safety Report 10768415 (Version 2)
Quarter: 2016Q1

REPORT INFORMATION
  Report Type: Spontaneous
  Country: IT (occurrence: IT)
  Receive Date: 20150206
  Receipt Date: 20160212
  Transmission Date: 20160525
  Serious: Yes (Other)
  Sender: FDA-Public Use
  Company Number: IT-ACCORD-028475

PATIENT
  Age: 67 Year
  Sex: Male

DRUGS (2)
  1. MYCOPHENOLIC ACID. [Suspect]
     Active Substance: MYCOPHENOLIC ACID
     Indication: ALLERGIC GRANULOMATOUS ANGIITIS
  2. PREDNISONE/PREDNISONE ACETATE [Concomitant]
     Indication: ALLERGIC GRANULOMATOUS ANGIITIS
     Route: 048

REACTIONS (1)
  - Kaposi^s sarcoma [Recovered/Resolved]
